FAERS Safety Report 14393444 (Version 2)
Quarter: 2018Q4

REPORT INFORMATION
  Report Type: Spontaneous
  Country: FR (occurrence: FR)
  Receive Date: 20180116
  Receipt Date: 20181009
  Transmission Date: 20190204
  Serious: Yes (Other)
  Sender: FDA-Public Use
  Company Number: FR-SA-2018SA007520

PATIENT
  Age: 71 Year
  Sex: Male
  Weight: 93 kg

DRUGS (2)
  1. TAXOTERE [Suspect]
     Active Substance: DOCETAXEL
     Dosage: UNK
     Route: 041
     Dates: start: 20171205, end: 20171205
  2. TAXOTERE [Suspect]
     Active Substance: DOCETAXEL
     Indication: BRONCHIAL CARCINOMA
     Dosage: 75 MG/M2,QCY
     Route: 041
     Dates: start: 20170630, end: 20170630

REACTIONS (2)
  - Localised infection [Not Recovered/Not Resolved]
  - Onycholysis [Recovering/Resolving]

NARRATIVE: CASE EVENT DATE: 20171205
